FAERS Safety Report 9439885 (Version 1)
Quarter: 2013Q3

REPORT INFORMATION
  Report Type: Spontaneous
  Country: GB (occurrence: GB)
  Receive Date: 20130805
  Receipt Date: 20130805
  Transmission Date: 20140515
  Serious: Yes (Other)
  Sender: FDA-Public Use
  Company Number: GB-JNJFOC-20130716425

PATIENT
  Age: 19 Year
  Sex: Female

DRUGS (1)
  1. CILEST [Suspect]
     Indication: MENORRHAGIA
     Route: 048

REACTIONS (3)
  - Depression suicidal [Recovered/Resolved]
  - Depression [Recovered/Resolved]
  - Off label use [Unknown]
